FAERS Safety Report 8495474-3 (Version None)
Quarter: 2012Q3

REPORT INFORMATION
  Report Type: 
  Country: None (occurrence: None)
  Receive Date: 20120709
  Receipt Date: 20120704
  Transmission Date: 20120928
  Serious: Yes (Death, Life-Threatening, Hospitalization)
  Sender: FDA-Public Use
  Company Number: DE-ABBOTT-12P-062-0924478-00

PATIENT
  Sex: Female

DRUGS (2)
  1. ARTIFICIAL NUTRITION [Concomitant]
     Indication: PRODUCT USED FOR UNKNOWN INDICATION
  2. HUMIRA [Suspect]
     Indication: CROHN'S DISEASE
     Route: 058
     Dates: start: 20110728, end: 20120328

REACTIONS (4)
  - COMA [None]
  - LOWER RESPIRATORY TRACT INFECTION VIRAL [None]
  - RENAL FAILURE ACUTE [None]
  - PANCREATIC DISORDER [None]
